FAERS Safety Report 7552307-7 (Version None)
Quarter: 2011Q2

REPORT INFORMATION
  Report Type: 
  Country: None (occurrence: None)
  Receive Date: 20110616
  Receipt Date: 20050502
  Transmission Date: 20111010
  Serious: Yes (Hospitalization)
  Sender: FDA-Public Use
  Company Number: PHHO2003NL04439

PATIENT
  Sex: Female

DRUGS (3)
  1. DIOVAN [Suspect]
     Indication: ESSENTIAL HYPERTENSION
     Dosage: 80 MG, UNK
     Dates: start: 20020924
  2. BUMETANIDE [Concomitant]
     Dosage: 1 X 2.5 MG
  3. METOPROLOL TARTRATE [Concomitant]
     Dosage: 100 MG, UNK

REACTIONS (2)
  - MYOCARDIAL INFARCTION [None]
  - CARDIAC FAILURE [None]
